FAERS Safety Report 5091043-6 (Version None)
Quarter: 2006Q3

REPORT INFORMATION
  Report Type: 
  Country: None (occurrence: None)
  Receive Date: 20060829
  Receipt Date: 20050707
  Transmission Date: 20061208
  Serious: No
  Sender: FDA-Public Use
  Company Number: US-GLAXOSMITHKLINE-A0565322A

PATIENT
  Age: 81 Year
  Sex: Male

DRUGS (9)
  1. ACYCLOVIR [Suspect]
     Indication: HERPES SIMPLEX
     Dosage: 400MG PER DAY
     Route: 048
  2. VITAMIN E [Concomitant]
  3. ASCORBIC ACID [Concomitant]
  4. ST. JOHN'S WORT [Concomitant]
  5. MAGNESIUM [Concomitant]
  6. POTASSIUM [Concomitant]
  7. CALCIUM GLUCONATE [Concomitant]
  8. ZINC [Concomitant]
  9. VITAMIN B COMPLEX CAP [Concomitant]

REACTIONS (1)
  - ARTHRITIS [None]
